FAERS Safety Report 20532453 (Version 2)
Quarter: 2022Q1

REPORT INFORMATION
  Report Type: Report from Study
  Country: US (occurrence: US)
  Receive Date: 20220301
  Receipt Date: 20220302
  Transmission Date: 20220423
  Serious: Yes (Hospitalization)
  Sender: FDA-Public Use
  Company Number: US-SERVIER-S21011331

PATIENT

DRUGS (7)
  1. PEGASPARGASE [Suspect]
     Active Substance: PEGASPARGASE
     Indication: Acute lymphocytic leukaemia
     Dosage: 0.83 ML/MIN
     Route: 042
     Dates: start: 20210329, end: 20210329
  2. TN UNSPECIFIED [Concomitant]
     Indication: Acute lymphocytic leukaemia
     Dosage: 100 MG, BID
     Route: 048
     Dates: start: 20210315
  3. TN UNSPECIFIED [Concomitant]
     Dosage: 100 MG, BID
     Route: 048
     Dates: start: 20210414, end: 20210428
  4. TN UNSPECIFIED [Concomitant]
     Dosage: 100 MG, BID
     Route: 048
     Dates: start: 20210521, end: 20210604
  5. TN UNSPECIFIED [Concomitant]
     Indication: Acute lymphocytic leukaemia
     Dosage: 5.4 ML/MIN, OTHER
     Route: 042
     Dates: start: 20210329, end: 20210329
  6. TN UNSPECIFIED [Concomitant]
     Indication: Product used for unknown indication
     Dosage: UNK
     Route: 065
     Dates: start: 20210329, end: 20210329
  7. TN UNSPECIFIED [Concomitant]
     Indication: Product used for unknown indication
     Dosage: UNK
     Route: 065
     Dates: start: 20210329

REACTIONS (1)
  - Urticaria [Recovered/Resolved]

NARRATIVE: CASE EVENT DATE: 20210329
